FAERS Safety Report 10008740 (Version 1)
Quarter: 2014Q1

REPORT INFORMATION
  Report Type: Spontaneous
  Country: US (occurrence: US)
  Receive Date: 20140312
  Receipt Date: 20140312
  Transmission Date: 20141002
  Serious: No
  Sender: FDA-Public Use
  Company Number: US-INCYTE CORPORATION-2012IN000748

PATIENT
  Sex: Female

DRUGS (7)
  1. JAKAFI [Suspect]
     Indication: MYELOFIBROSIS
     Dosage: 15 MG, BID
     Route: 048
  2. JAKAFI [Suspect]
     Dosage: 20 MG, QD
     Route: 048
  3. JAKAFI [Suspect]
     Dosage: 20 MG, QOD
     Route: 048
     Dates: end: 20120327
  4. DIURETICS [Concomitant]
  5. MULTIVITAMINS, PLAIN [Concomitant]
  6. ANTIHYPERTENSIVES [Concomitant]
  7. HORMONES NOS [Concomitant]

REACTIONS (3)
  - Feeling abnormal [Unknown]
  - Decreased activity [Unknown]
  - Contusion [Unknown]
